FAERS Safety Report 8542911-1 (Version None)
Quarter: 2012Q3

REPORT INFORMATION
  Report Type: 
  Country: None (occurrence: None)
  Receive Date: 20120716
  Receipt Date: 20120629
  Transmission Date: 20120928
  Serious: Yes (Other)
  Sender: FDA-Public Use
  Company Number: 2012-000847

PATIENT
  Age: 65 Year
  Sex: Female

DRUGS (8)
  1. BONIVA [Suspect]
     Indication: OTOSCLEROSIS
     Dosage: 150 MG, ONCE MONTHLY, ORAL
     Route: 048
     Dates: start: 20090926, end: 20101001
  2. BONIVA [Suspect]
     Indication: OTOSCLEROSIS
     Dosage: 150 MG, ONCE MONTHLY, ORAL
     Route: 048
     Dates: start: 20060619, end: 20081224
  3. ZETIA [Concomitant]
  4. ACTONEL [Suspect]
     Indication: OTOSCLEROSIS
     Dosage: 150 MG ONCE MONTHLY, ORAL
     Route: 048
     Dates: start: 20081224, end: 20090926
  5. PRAVASTATIN [Concomitant]
  6. FLORICAL (CALCIUM CARBONATE, SODIUM FLUORIDE) [Concomitant]
  7. ACTONEL [Suspect]
     Indication: OTOSCLEROSIS
     Dosage: 5 MG, ORAL
     Route: 048
     Dates: start: 20050205, end: 20060619
  8. FOSAMAX [Suspect]
     Indication: OTOSCLEROSIS
     Dosage: 10 MG, DAILY, ORAL
     Route: 048
     Dates: start: 20030221, end: 20030614

REACTIONS (6)
  - STRESS FRACTURE [None]
  - FRACTURE NONUNION [None]
  - PAIN IN EXTREMITY [None]
  - ENCHONDROMA [None]
  - GAIT DISTURBANCE [None]
  - ATYPICAL FEMUR FRACTURE [None]
